FAERS Safety Report 7135235-0 (Version None)
Quarter: 2010Q4

REPORT INFORMATION
  Report Type: 
  Country: None (occurrence: None)
  Receive Date: 20101203
  Receipt Date: 20101123
  Transmission Date: 20110411
  Serious: Yes (Hospitalization)
  Sender: FDA-Public Use
  Company Number: A0743838A

PATIENT
  Age: 67 Year
  Sex: Male
  Weight: 93.6 kg

DRUGS (4)
  1. AVANDIA [Suspect]
     Indication: DIABETES MELLITUS
     Dosage: 4MG PER DAY
     Route: 048
     Dates: start: 20060223
  2. TOPROL-XL [Concomitant]
  3. PREVACID [Concomitant]
  4. HYDROCODONE BITARTRATE [Concomitant]

REACTIONS (2)
  - ISCHAEMIC CARDIOMYOPATHY [None]
  - MYOCARDIAL INFARCTION [None]
